FAERS Safety Report 25974903 (Version 1)
Quarter: 2025Q4

REPORT INFORMATION
  Report Type: Report from Study
  Country: US (occurrence: US)
  Receive Date: 20251029
  Receipt Date: 20251029
  Transmission Date: 20260118
  Serious: Yes (Other)
  Sender: MYLAN
  Company Number: US-MYLANLABS-2025M1089582

PATIENT
  Sex: Female

DRUGS (1)
  1. TYRVAYA [Suspect]
     Active Substance: VARENICLINE TARTRATE
     Indication: Product used for unknown indication
     Dosage: UNK
     Dates: start: 20250508, end: 20251017

REACTIONS (3)
  - Pneumonia [Unknown]
  - Respiratory tract irritation [Unknown]
  - Sneezing [Unknown]

NARRATIVE: CASE EVENT DATE: 20250101
